FAERS Safety Report 17221945 (Version 1)
Quarter: 2020Q1

REPORT INFORMATION
  Report Type: Spontaneous
  Country: US (occurrence: US)
  Receive Date: 20200101
  Receipt Date: 20200101
  Transmission Date: 20200409
  Serious: No
  Sender: FDA-Public Use
  Company Number: US-AMGEN-USASP2019216055

PATIENT
  Sex: Female

DRUGS (12)
  1. BUPROPION HYDROCHLORIDE XL [Concomitant]
     Active Substance: BUPROPION HYDROCHLORIDE
     Dosage: 300 MILLIGRAM
  2. MONTELUKAST [Concomitant]
     Active Substance: MONTELUKAST SODIUM
     Dosage: 10 MILLIGRAM
  3. PROMETHAZINE DM [Concomitant]
     Active Substance: DEXTROMETHORPHAN HYDROBROMIDE\PROMETHAZINE HYDROCHLORIDE
     Dosage: UNK
  4. FOLIC ACID. [Concomitant]
     Active Substance: FOLIC ACID
     Dosage: 1 MILLIGRAM
  5. PANTOPRAZOLE [Concomitant]
     Active Substance: PANTOPRAZOLE
     Dosage: 40 MILLIGRAM
  6. TOPIRAMATE. [Concomitant]
     Active Substance: TOPIRAMATE
     Dosage: 200 MILLIGRAM
  7. MUCINEX D [Concomitant]
     Active Substance: GUAIFENESIN\PSEUDOEPHEDRINE HYDROCHLORIDE
     Dosage: UNK (60-600 MG)
  8. PLAQUENIL [HYDROXYCHLOROQUINE PHOSPHATE] [Concomitant]
     Active Substance: HYDROXYCHLOROQUINE DIPHOSPHATE
     Dosage: UNK
  9. AZITHROMYCIN ANHYDROUS. [Concomitant]
     Active Substance: AZITHROMYCIN ANHYDROUS
     Dosage: 250 MILLIGRAM
  10. ENBREL [Suspect]
     Active Substance: ETANERCEPT
     Indication: RHEUMATOID ARTHRITIS
     Dosage: 50 MILLIGRAM, QWK
     Route: 058
     Dates: start: 201611
  11. ATORVASTATIN [Concomitant]
     Active Substance: ATORVASTATIN
     Dosage: 40 MILLIGRAM
  12. DICLOFENAC/MISOPROSTOL [Concomitant]
     Active Substance: DICLOFENAC SODIUM\MISOPROSTOL
     Dosage: UNK (75-0.2 MG)

REACTIONS (1)
  - Sinusitis [Unknown]
